FAERS Safety Report 16378151 (Version 5)
Quarter: 2024Q3

REPORT INFORMATION
  Report Type: Spontaneous
  Country: US (occurrence: US)
  Receive Date: 20190531
  Receipt Date: 20240722
  Transmission Date: 20241017
  Serious: Yes (Other)
  Sender: GLAXOSMITHKLINE
  Company Number: US-GSKCCFUS-AE-14166

PATIENT
  Sex: Female

DRUGS (1)
  1. BENLYSTA [Suspect]
     Active Substance: BELIMUMAB
     Indication: Product used for unknown indication
     Dosage: 200 MG
     Route: 058
     Dates: start: 20120725

REACTIONS (9)
  - Surgery [Unknown]
  - Injection site pain [Unknown]
  - Fatigue [Unknown]
  - Stress [Unknown]
  - Peripheral swelling [Not Recovered/Not Resolved]
  - Wrong technique in device usage process [Unknown]
  - Accidental underdose [Unknown]
  - Product dose omission issue [Not Recovered/Not Resolved]
  - Social problem [Unknown]
